FAERS Safety Report 8565555-4 (Version None)
Quarter: 2012Q3

REPORT INFORMATION
  Report Type: 
  Country: None (occurrence: None)
  Receive Date: 20120724
  Receipt Date: 20120718
  Transmission Date: 20120928
  Serious: Yes (Other)
  Sender: FDA-Public Use
  Company Number: GER/UKI/12/0025085

PATIENT
  Sex: Male

DRUGS (2)
  1. QUETIAPINE FUMARATE [Suspect]
     Indication: PRODUCT USED FOR UNKNOWN INDICATION
     Dosage: 300 MG
     Dates: start: 20120627
  2. LITHIUM CARBONATE [Concomitant]

REACTIONS (5)
  - SEDATION [None]
  - BRUXISM [None]
  - ANHEDONIA [None]
  - ERECTILE DYSFUNCTION [None]
  - TARDIVE DYSKINESIA [None]
